FAERS Safety Report 7299700-8 (Version None)
Quarter: 2011Q1

REPORT INFORMATION
  Report Type: 
  Country: None (occurrence: None)
  Receive Date: 20110217
  Receipt Date: 20110125
  Transmission Date: 20110831
  Serious: No
  Sender: FDA-Public Use
  Company Number: US-B.I. PHARMACEUTICALS,INC./RIDGEFIELD-2011-BP-02399BP

PATIENT
  Age: 67 Year
  Sex: Male

DRUGS (5)
  1. BENICAR [Concomitant]
     Indication: HYPERTENSION
  2. METOPROLOL TARTRATE [Concomitant]
     Indication: HYPERTENSION
  3. PRADAXA [Suspect]
     Indication: ATRIAL FIBRILLATION
     Dosage: 300 MG
     Route: 048
     Dates: start: 20101214
  4. KEPPRA [Concomitant]
     Indication: CONVULSION
  5. RYTHMOL SR [Concomitant]
     Indication: ATRIAL FIBRILLATION

REACTIONS (3)
  - BLOOD URINE PRESENT [None]
  - RASH ERYTHEMATOUS [None]
  - PRURITUS [None]
